FAERS Safety Report 17488112 (Version 6)
Quarter: 2023Q1

REPORT INFORMATION
  Report Type: Spontaneous
  Country: US (occurrence: US)
  Receive Date: 20200303
  Receipt Date: 20230303
  Transmission Date: 20230418
  Serious: Yes (Other)
  Sender: FDA-Public Use
  Company Number: US-PFIZER INC-2020094382

PATIENT
  Age: 83 Year
  Sex: Female
  Weight: 56.236 kg

DRUGS (2)
  1. XELJANZ XR [Suspect]
     Active Substance: TOFACITINIB CITRATE
     Indication: Rheumatoid arthritis
     Dosage: 11 MG, 1X/DAY (ONCE A DAY AFTER BREAKFAST)
  2. LEFLUNOMIDE [Concomitant]
     Active Substance: LEFLUNOMIDE
     Indication: Arthritis
     Dosage: 10 MG

REACTIONS (8)
  - Dementia [Unknown]
  - Limb injury [Unknown]
  - Peripheral swelling [Unknown]
  - Inflammation [Unknown]
  - Influenza [Unknown]
  - Pain [Unknown]
  - Limb discomfort [Unknown]
  - Thyroid disorder [Unknown]

NARRATIVE: CASE EVENT DATE: 20220101
